FAERS Safety Report 25636379 (Version 2)
Quarter: 2025Q3

REPORT INFORMATION
  Report Type: Spontaneous
  Country: US (occurrence: US)
  Receive Date: 20250803
  Receipt Date: 20250805
  Transmission Date: 20251021
  Serious: No
  Sender: ABBVIE
  Company Number: US-ABBVIE-6395706

PATIENT
  Sex: Female

DRUGS (1)
  1. REFRESH PLUS [Suspect]
     Active Substance: CARBOXYMETHYLCELLULOSE SODIUM
     Indication: Glaucoma
     Route: 047

REACTIONS (4)
  - Off label use [Unknown]
  - Eye irritation [Unknown]
  - Visual impairment [Unknown]
  - Vision blurred [Unknown]
